FAERS Safety Report 14808557 (Version 2)
Quarter: 2018Q2

REPORT INFORMATION
  Report Type: Report from Study
  Country: ES (occurrence: ES)
  Receive Date: 20180425
  Receipt Date: 20180518
  Transmission Date: 20180711
  Serious: Yes (Hospitalization)
  Sender: FDA-Public Use
  Company Number: ES-TEVA-2018-ES-884869

PATIENT
  Age: 86 Year
  Sex: Female

DRUGS (9)
  1. CLEXANE 60 [Concomitant]
     Dosage: 1 AMP/24 H
     Route: 058
     Dates: start: 20170125
  2. MIRTAZAPINA (2704A) [Concomitant]
     Active Substance: MIRTAZAPINE
     Dosage: 30 MG DIA
     Route: 048
     Dates: start: 20170125
  3. ENALAPRIL (2142A) [Concomitant]
     Active Substance: ENALAPRIL
     Dosage: 20 MG DIA
     Route: 048
     Dates: start: 20170125
  4. FUROSEMIDE. [Suspect]
     Active Substance: FUROSEMIDE
     Dosage: 40 MG PER DAY
     Route: 048
     Dates: start: 20170125
  5. METFORMINA (1359A) [Concomitant]
     Active Substance: METFORMIN HYDROCHLORIDE
     Dosage: 850 MG CADA 12H
     Route: 048
     Dates: start: 20170125
  6. BISOPROLOL (2328A) [Concomitant]
     Active Substance: BISOPROLOL
     Dosage: 5 MG DIA
     Route: 048
     Dates: start: 20170125
  7. SERTRALINA (2537A) [Suspect]
     Active Substance: SERTRALINE HYDROCHLORIDE
     Dosage: 50 MG DIA
     Route: 048
     Dates: start: 20170125, end: 20170602
  8. OMEPRAZOL (2141A) [Concomitant]
     Active Substance: OMEPRAZOLE
     Dosage: 20 MG DIA
     Route: 048
     Dates: start: 20170125
  9. ZOLPIDEM [Suspect]
     Active Substance: ZOLPIDEM\ZOLPIDEM TARTRATE
     Dosage: 0-0-1
     Route: 048
     Dates: start: 20170125, end: 20170602

REACTIONS (1)
  - Hepatitis [Recovered/Resolved]

NARRATIVE: CASE EVENT DATE: 20170602
